FAERS Safety Report 23054843 (Version 1)
Quarter: 2023Q4

REPORT INFORMATION
  Report Type: Other
  Country: NL (occurrence: NL)
  Receive Date: 20231011
  Receipt Date: 20231011
  Transmission Date: 20240109
  Serious: Yes (Other)
  Sender: FDA-Public Use
  Company Number: None

PATIENT

DRUGS (5)
  1. ATOVAQUONE [Suspect]
     Active Substance: ATOVAQUONE
     Indication: Pyoderma gangrenosum
     Dosage: 10 MILLIGRAM (10MG PER DAG)
     Route: 065
     Dates: start: 20230726, end: 20230821
  2. FLUCONAZOLE [Concomitant]
     Active Substance: FLUCONAZOLE
     Indication: Vulvovaginal candidiasis
     Dosage: UNK
     Route: 065
     Dates: start: 20230808
  3. CICLOPIROX [Concomitant]
     Active Substance: CICLOPIROX
     Indication: Vulvovaginal candidiasis
     Dosage: UNK
     Route: 065
     Dates: start: 20230808
  4. PREDNISOLONE [Concomitant]
     Active Substance: PREDNISOLONE
     Indication: Pyoderma gangrenosum
     Dosage: UNK
     Route: 065
     Dates: start: 20230808
  5. CLOBETASONA [Concomitant]
     Indication: Vulvovaginal candidiasis
     Dosage: UNK
     Route: 065
     Dates: start: 20230808

REACTIONS (10)
  - Toxic skin eruption [Not Recovered/Not Resolved]
  - Mouth swelling [Not Recovered/Not Resolved]
  - Malaise [Not Recovered/Not Resolved]
  - Oropharyngeal pain [Not Recovered/Not Resolved]
  - Hypersomnia [Not Recovered/Not Resolved]
  - Pharyngeal swelling [Not Recovered/Not Resolved]
  - Lip swelling [Not Recovered/Not Resolved]
  - Rash erythematous [Not Recovered/Not Resolved]
  - Off label use [Unknown]
  - Swelling face [Not Recovered/Not Resolved]

NARRATIVE: CASE EVENT DATE: 20230818
